FAERS Safety Report 5205487-2 (Version None)
Quarter: 2006Q4

REPORT INFORMATION
  Report Type: 
  Country: None (occurrence: None)
  Receive Date: 20061027
  Receipt Date: 20050906
  Transmission Date: 20070319
  Serious: Yes (Other)
  Sender: FDA-Public Use
  Company Number: HQWYE546020SEP05

PATIENT
  Age: 64 Year
  Sex: Female
  Weight: 96.25 kg

DRUGS (5)
  1. PREMARIN [Suspect]
     Dosage: ORAL
     Route: 048
     Dates: end: 20030101
  2. PREMARIN [Suspect]
     Dosage: ORAL
     Route: 048
     Dates: start: 20030601
  3. ATENOLOL [Concomitant]
  4. SYNTHROID [Concomitant]
  5. BENICAR [Concomitant]

REACTIONS (1)
  - ABNORMAL BEHAVIOUR [None]
